FAERS Safety Report 20328887 (Version 2)
Quarter: 2022Q1

REPORT INFORMATION
  Report Type: Report from Study
  Country: US (occurrence: US)
  Receive Date: 20220112
  Receipt Date: 20220223
  Transmission Date: 20220423
  Serious: Yes (Hospitalization)
  Sender: FDA-Public Use
  Company Number: US-PFIZER INC-202200020871

PATIENT
  Age: 20 Year
  Sex: Male
  Weight: 108.85 kg

DRUGS (9)
  1. VINCRISTINE SULFATE [Suspect]
     Active Substance: VINCRISTINE SULFATE
     Indication: Precursor B-lymphoblastic lymphoma
     Dosage: VARIOUS
     Route: 042
     Dates: start: 20190218, end: 20201230
  2. VINCRISTINE SULFATE [Suspect]
     Active Substance: VINCRISTINE SULFATE
     Dosage: VARIOUS
     Route: 042
     Dates: start: 20210114
  3. RUXOLITINIB [Suspect]
     Active Substance: RUXOLITINIB
     Indication: Precursor B-lymphoblastic lymphoma
     Dosage: TABLET, 110 MG, 2X/DAY
     Route: 048
     Dates: start: 20190218, end: 20201230
  4. RUXOLITINIB [Suspect]
     Active Substance: RUXOLITINIB
     Dosage: TABLET, 110 MG, 2X/DAY
     Route: 048
     Dates: start: 20210114
  5. METHOTREXATE [Suspect]
     Active Substance: METHOTREXATE
     Indication: Precursor B-lymphoblastic lymphoma
     Dosage: TABLET, MILLIGRAM, VARIOUS
     Route: 048
     Dates: start: 20190218, end: 20201230
  6. METHOTREXATE [Suspect]
     Active Substance: METHOTREXATE
     Dosage: TABLET, MILLIGRAM, VARIOUS
     Route: 048
     Dates: start: 20210114
  7. MERCAPTOPURINE [Suspect]
     Active Substance: MERCAPTOPURINE
     Indication: Precursor B-lymphoblastic lymphoma
     Dosage: TABLET; VARIOUS
     Route: 048
     Dates: start: 20190218, end: 20201230
  8. MERCAPTOPURINE [Suspect]
     Active Substance: MERCAPTOPURINE
     Dosage: TABLET; VARIOUS
     Route: 048
     Dates: start: 20210114
  9. OXYCODONE [Concomitant]
     Active Substance: OXYCODONE
     Dosage: UNK

REACTIONS (2)
  - Febrile neutropenia [Recovered/Resolved]
  - COVID-19 [Recovered/Resolved]

NARRATIVE: CASE EVENT DATE: 20201230
